FAERS Safety Report 10529445 (Version 2)
Quarter: 2017Q2

REPORT INFORMATION
  Report Type: Spontaneous
  Country: AU (occurrence: DE)
  Receive Date: 20141021
  Receipt Date: 20170426
  Transmission Date: 20170829
  Serious: Yes (Other)
  Sender: FDA-Public Use
  Company Number: DE-AMGEN-DEUSP2014079611

PATIENT
  Sex: Male

DRUGS (3)
  1. CALCIUM [Concomitant]
     Active Substance: CALCIUM
     Dosage: BODY WEIGHT }=15 KG: 1000 MG PER DAY, BODY
     Route: 048
  2. PROLIA [Suspect]
     Active Substance: DENOSUMAB
     Indication: OSTEOGENESIS IMPERFECTA
     Dosage: 1 MG/KG, Q3MO
     Route: 058
  3. VITAMIN D [Concomitant]
     Active Substance: CHOLECALCIFEROL
     Dosage: BODY WEIGHT {= 30 KG: 500 INTERNATIONAL UNITS PER DAY, BODY WEIGHT }=30 KG: 1000 INTERNATIONAL UNITS

REACTIONS (6)
  - Hypocalcaemia [Unknown]
  - Off label use [Unknown]
  - Fracture [Unknown]
  - Bone pain [Unknown]
  - Blood parathyroid hormone increased [Unknown]
  - Injury [Unknown]
